FAERS Safety Report 8737537 (Version 2)
Quarter: 2012Q4

REPORT INFORMATION
  Report Type: 
  Country: US (occurrence: US)
  Receive Date: 20120822
  Receipt Date: 20120830
  Transmission Date: 20130627
  Serious: Yes (Death, Hospitalization, Other)
  Sender: FDA-Public Use
  Company Number: US-BAXTER-2012BAX014801

PATIENT
  Age: 63 None
  Sex: Female

DRUGS (1)
  1. DIANEAL LOW CALCIUM [Suspect]
     Indication: PERITONEAL DIALYSIS
     Route: 033
     Dates: end: 20120816

REACTIONS (4)
  - Respiratory failure [Fatal]
  - Cardiac failure [Fatal]
  - Pulmonary embolism [Not Recovered/Not Resolved]
  - Decubitus ulcer [Not Recovered/Not Resolved]
